FAERS Safety Report 20471287 (Version 1)
Quarter: 2022Q1

REPORT INFORMATION
  Report Type: Spontaneous
  Country: US (occurrence: None)
  Receive Date: 20220211
  Receipt Date: 20220211
  Transmission Date: 20220423
  Serious: Yes (Death)
  Sender: FDA-Public Use
  Company Number: None

PATIENT
  Age: 87 Year
  Sex: Male

DRUGS (1)
  1. PRALUENT [Suspect]
     Active Substance: ALIROCUMAB
     Indication: Lipoprotein metabolism disorder
     Dosage: 150MG EVERY 2 WEEKS SUBCUTANEOUS?
     Route: 058
     Dates: start: 20200130

REACTIONS (1)
  - Death [None]

NARRATIVE: CASE EVENT DATE: 20220209
